FAERS Safety Report 23026599 (Version 1)
Quarter: 2023Q4

REPORT INFORMATION
  Report Type: Spontaneous
  Country: US (occurrence: US)
  Receive Date: 20231004
  Receipt Date: 20231004
  Transmission Date: 20240109
  Serious: No
  Sender: FDA-Public Use
  Company Number: US-ABBVIE-5433937

PATIENT
  Sex: Male

DRUGS (2)
  1. SKYRIZI [Suspect]
     Active Substance: RISANKIZUMAB-RZAA
     Indication: Crohn^s disease
     Dosage: TIME INTERVAL: TOTAL
     Route: 042
     Dates: start: 20230828, end: 20230828
  2. SKYRIZI [Suspect]
     Active Substance: RISANKIZUMAB-RZAA
     Indication: Crohn^s disease
     Dosage: TIME INTERVAL: TOTAL
     Route: 042
     Dates: start: 20230925, end: 20230925

REACTIONS (9)
  - Joint range of motion decreased [Unknown]
  - Influenza like illness [Unknown]
  - Paraesthesia oral [Recovered/Resolved]
  - Pain [Unknown]
  - Fatigue [Unknown]
  - Oral mucosal roughening [Unknown]
  - Arthralgia [Unknown]
  - Oral pain [Unknown]
  - Oral discomfort [Unknown]

NARRATIVE: CASE EVENT DATE: 20230101
